FAERS Safety Report 17956115 (Version 1)
Quarter: 2020Q2

REPORT INFORMATION
  Report Type: Spontaneous
  Country: US (occurrence: US)
  Receive Date: 20200629
  Receipt Date: 20200629
  Transmission Date: 20200714
  Serious: No
  Sender: FDA-Public Use
  Company Number: US-PFIZER INC-2020248353

PATIENT
  Age: 67 Year
  Sex: Male

DRUGS (8)
  1. TRAMADOL. [Suspect]
     Active Substance: TRAMADOL
  2. SIMVASTATIN. [Suspect]
     Active Substance: SIMVASTATIN
  3. SERTRALINE HCL [Suspect]
     Active Substance: SERTRALINE HYDROCHLORIDE
  4. CIPROFLOXACIN. [Suspect]
     Active Substance: CIPROFLOXACIN
  5. ARIPIPRAZOLE. [Suspect]
     Active Substance: ARIPIPRAZOLE
  6. DULOXETINE. [Suspect]
     Active Substance: DULOXETINE
  7. METFORMIN [Suspect]
     Active Substance: METFORMIN HYDROCHLORIDE
  8. TAMSULOSIN [Suspect]
     Active Substance: TAMSULOSIN

REACTIONS (1)
  - Drug hypersensitivity [Unknown]
